FAERS Safety Report 18932675 (Version 1)
Quarter: 2021Q1

REPORT INFORMATION
  Report Type: Spontaneous
  Country: CA (occurrence: CA)
  Receive Date: 20210224
  Receipt Date: 20210224
  Transmission Date: 20210420
  Serious: Yes (Hospitalization)
  Sender: FDA-Public Use
  Company Number: NVSC2021CA038222

PATIENT
  Age: 75 Year
  Sex: Female

DRUGS (1)
  1. SANDOZ AMOXI?CLAV [Suspect]
     Active Substance: AMOXICILLIN\CLAVULANIC ACID
     Indication: URINARY TRACT INFECTION
     Dosage: 1 DF, Q12H
     Route: 048

REACTIONS (4)
  - Pyrexia [Unknown]
  - White blood cell count increased [Unknown]
  - Rash [Unknown]
  - Eosinophil count increased [Unknown]
